FAERS Safety Report 10494317 (Version 1)
Quarter: 2014Q4

REPORT INFORMATION
  Report Type: Spontaneous
  Country: US (occurrence: None)
  Receive Date: 20141002
  Receipt Date: 20141002
  Transmission Date: 20150528
  Serious: No
  Sender: FDA-Public Use
  Company Number: None

PATIENT
  Age: 72 Year
  Sex: Male

DRUGS (2)
  1. LOSARTAN [Concomitant]
     Active Substance: LOSARTAN
  2. ENBREL [Suspect]
     Active Substance: ETANERCEPT
     Indication: PSORIATIC ARTHROPATHY
     Dosage: 1 VIAL (25 MG)
     Route: 058
     Dates: start: 20090618

REACTIONS (1)
  - Pericarditis fungal [None]

NARRATIVE: CASE EVENT DATE: 20140924
